FAERS Safety Report 5160246-4 (Version None)
Quarter: 2006Q4

REPORT INFORMATION
  Report Type: 
  Country: None (occurrence: None)
  Receive Date: 20061129
  Receipt Date: 20061101
  Transmission Date: 20070319
  Serious: Yes (Disabling, Other)
  Sender: FDA-Public Use
  Company Number: US-GLAXOSMITHKLINE-A0625830A

PATIENT
  Age: 56 Year
  Sex: Female
  Weight: 54.5 kg

DRUGS (2)
  1. CIMETIDINE [Suspect]
     Dosage: 400MG SINGLE DOSE
     Route: 048
     Dates: end: 20020801
  2. TAGAMET [Suspect]

REACTIONS (5)
  - DIARRHOEA [None]
  - GASTROOESOPHAGEAL REFLUX DISEASE [None]
  - HYPERCHLORHYDRIA [None]
  - PRURITUS [None]
  - VOMITING [None]
